FAERS Safety Report 14677426 (Version 1)
Quarter: 2018Q1

REPORT INFORMATION
  Report Type: Spontaneous
  Country: US (occurrence: US)
  Receive Date: 20180325
  Receipt Date: 20180325
  Transmission Date: 20180509
  Serious: No
  Sender: FDA-Public Use
  Company Number: US-JNJFOC-20180318692

PATIENT
  Age: 59 Year
  Sex: Female
  Weight: 55.79 kg

DRUGS (2)
  1. MENS ROGAINE EXTRA STRENGTH [Suspect]
     Active Substance: MINOXIDIL
     Route: 061
  2. MENS ROGAINE EXTRA STRENGTH [Suspect]
     Active Substance: MINOXIDIL
     Indication: ALOPECIA
     Dosage: ABOUT HALF CAPFUL, FIRST DAY IN THE EVENING AND THE SECOND DAY IN??THE MORNING AND THE EVENING
     Route: 061

REACTIONS (5)
  - Hair disorder [Unknown]
  - Overdose [Unknown]
  - Product formulation issue [Unknown]
  - Product use issue [Unknown]
  - Off label use [Unknown]
